FAERS Safety Report 9107958 (Version 1)
Quarter: 2013Q1

REPORT INFORMATION
  Report Type: Spontaneous
  Country: ES (occurrence: ES)
  Receive Date: 20130221
  Receipt Date: 20130221
  Transmission Date: 20140127
  Serious: Yes (Hospitalization)
  Sender: FDA-Public Use
  Company Number: ES-PFIZER INC-2013063603

PATIENT
  Age: 76 Year
  Sex: Male

DRUGS (6)
  1. ALDACTONE [Suspect]
     Indication: ASCITES
     Dosage: 100 MG, DAY
     Route: 048
     Dates: start: 20120327, end: 20120402
  2. SEGURIL [Interacting]
     Indication: ASCITES
     Dosage: 120 MG, DAY
     Route: 048
     Dates: start: 20120327, end: 20120402
  3. OMEPRAZOL [Concomitant]
     Dosage: 20 MG, DAY
     Route: 048
     Dates: start: 201203
  4. RIFAXIMIN [Concomitant]
     Dosage: 300 MG, DAY
     Route: 048
     Dates: start: 2011, end: 20120402
  5. ESCITALOPRAM [Concomitant]
     Dosage: 20 MG, DAY
     Route: 048
     Dates: start: 2011, end: 20120402
  6. BISOPROLOL [Concomitant]
     Indication: CARDIAC FAILURE
     Dosage: 5 MG, DAY
     Route: 048
     Dates: start: 201203, end: 20120402

REACTIONS (2)
  - Hepatic encephalopathy [Recovered/Resolved]
  - Drug interaction [Recovered/Resolved]
